FAERS Safety Report 22350540 (Version 1)
Quarter: 2023Q2

REPORT INFORMATION
  Report Type: Spontaneous
  Country: US (occurrence: None)
  Receive Date: 20230521
  Receipt Date: 20230521
  Transmission Date: 20230721
  Serious: Yes (Life-Threatening, Disabling, Other)
  Sender: FDA-Public Use
  Company Number: None

PATIENT
  Age: 52 Year
  Sex: Male
  Weight: 103.5 kg

DRUGS (3)
  1. CHOLINE\INOSITOL\METHIONINE [Suspect]
     Active Substance: CHOLINE\INOSITOL\METHIONINE
     Indication: Lipid metabolism disorder
     Dosage: OTHER FREQUENCY : ONCE A WEEK;?
     Route: 030
     Dates: start: 20230225, end: 20230226
  2. CHOLINE\INOSITOL\METHIONINE [Suspect]
     Active Substance: CHOLINE\INOSITOL\METHIONINE
     Indication: Energy increased
  3. BLOOD PRESSURE [Concomitant]

REACTIONS (15)
  - Hypersensitivity [None]
  - Pharyngeal swelling [None]
  - Dyspnoea [None]
  - Tongue discomfort [None]
  - Oral discomfort [None]
  - Dental discomfort [None]
  - Headache [None]
  - Oral discomfort [None]
  - Skin burning sensation [None]
  - Eye irritation [None]
  - Swelling [None]
  - Nonspecific reaction [None]
  - Sjogren^s syndrome [None]
  - Thermal burn [None]
  - Dysgeusia [None]

NARRATIVE: CASE EVENT DATE: 20230225
